FAERS Safety Report 17142668 (Version 5)
Quarter: 2020Q3

REPORT INFORMATION
  Report Type: Report from Study
  Country: JP (occurrence: JP)
  Receive Date: 20191211
  Receipt Date: 20200908
  Transmission Date: 20201102
  Serious: Yes (Other)
  Sender: FDA-Public Use
  Company Number: JP-JNJFOC-20191211305

PATIENT
  Age: 65 Year
  Sex: Male
  Weight: 68.5 kg

DRUGS (80)
  1. DARZALEX [Suspect]
     Active Substance: DARATUMUMAB
     Route: 041
     Dates: start: 20180130, end: 20180130
  2. DARZALEX [Suspect]
     Active Substance: DARATUMUMAB
     Route: 041
     Dates: start: 20180720, end: 20180720
  3. DARZALEX [Suspect]
     Active Substance: DARATUMUMAB
     Route: 041
     Dates: start: 20180817, end: 20180817
  4. DARZALEX [Suspect]
     Active Substance: DARATUMUMAB
     Route: 041
     Dates: start: 20181214, end: 20181214
  5. VELCADE [Suspect]
     Active Substance: BORTEZOMIB
     Dosage: BORTEZOMIB:3MG
     Route: 065
     Dates: start: 20180312, end: 20180312
  6. VELCADE [Suspect]
     Active Substance: BORTEZOMIB
     Dosage: BORTEZOMIB:3MG
     Route: 065
     Dates: start: 20180622, end: 20180622
  7. VELCADE [Suspect]
     Active Substance: BORTEZOMIB
     Dosage: BORTEZOMIB:3MG
     Route: 065
     Dates: start: 20180727, end: 20180727
  8. VELCADE [Suspect]
     Active Substance: BORTEZOMIB
     Dosage: BORTEZOMIB:3MG
     Route: 065
     Dates: start: 20180928, end: 20180928
  9. DEXAMETHASONE. [Concomitant]
     Active Substance: DEXAMETHASONE
     Route: 065
     Dates: start: 20180622, end: 20180623
  10. DEXAMETHASONE. [Concomitant]
     Active Substance: DEXAMETHASONE
     Route: 065
     Dates: start: 20190928, end: 20190929
  11. DARZALEX [Suspect]
     Active Substance: DARATUMUMAB
     Route: 041
     Dates: start: 20180525, end: 20180525
  12. VELCADE [Suspect]
     Active Substance: BORTEZOMIB
     Dosage: BORTEZOMIB:3MG
     Route: 065
     Dates: start: 20180819, end: 20180819
  13. VELCADE [Suspect]
     Active Substance: BORTEZOMIB
     Dosage: BORTEZOMIB:3MG
     Route: 065
     Dates: start: 20180123, end: 20180123
  14. VELCADE [Suspect]
     Active Substance: BORTEZOMIB
     Dosage: BORTEZOMIB:3MG
     Route: 065
     Dates: start: 20180730, end: 20180730
  15. VELCADE [Suspect]
     Active Substance: BORTEZOMIB
     Dosage: BORTEZOMIB:3MG
     Route: 065
     Dates: start: 20180824, end: 20180824
  16. VELCADE [Suspect]
     Active Substance: BORTEZOMIB
     Dosage: BORTEZOMIB:3MG
     Route: 065
     Dates: start: 20181018, end: 20181018
  17. DEXAMETHASONE. [Concomitant]
     Active Substance: DEXAMETHASONE
     Route: 065
     Dates: start: 20180309, end: 20180310
  18. DEXAMETHASONE. [Concomitant]
     Active Substance: DEXAMETHASONE
     Route: 065
     Dates: start: 20180521, end: 20180522
  19. DEXAMETHASONE. [Concomitant]
     Active Substance: DEXAMETHASONE
     Route: 065
     Dates: start: 20180618, end: 20180619
  20. DARZALEX [Suspect]
     Active Substance: DARATUMUMAB
     Route: 041
     Dates: start: 20181113, end: 20181113
  21. VELCADE [Suspect]
     Active Substance: BORTEZOMIB
     Dosage: BORTEZOMIB:3MG
     Route: 065
     Dates: start: 20180511, end: 20180511
  22. VELCADE [Suspect]
     Active Substance: BORTEZOMIB
     Dosage: BORTEZOMIB:3MG
     Route: 065
     Dates: start: 20180514, end: 20180514
  23. VELCADE [Suspect]
     Active Substance: BORTEZOMIB
     Dosage: BORTEZOMIB:3MG
     Route: 065
     Dates: start: 20180817, end: 20180817
  24. VELCADE [Suspect]
     Active Substance: BORTEZOMIB
     Dosage: BORTEZOMIB:3MG
     Route: 065
     Dates: start: 20181015, end: 20181015
  25. DEXAMETHASONE. [Concomitant]
     Active Substance: DEXAMETHASONE
     Route: 065
     Dates: start: 20180123, end: 20180124
  26. DEXAMETHASONE. [Concomitant]
     Active Substance: DEXAMETHASONE
     Route: 065
     Dates: start: 20180316, end: 20180317
  27. DEXAMETHASONE. [Concomitant]
     Active Substance: DEXAMETHASONE
     Route: 065
     Dates: start: 20180512, end: 20180512
  28. DEXAMETHASONE. [Concomitant]
     Active Substance: DEXAMETHASONE
     Route: 065
     Dates: start: 20180616, end: 20180616
  29. DEXAMETHASONE. [Concomitant]
     Active Substance: DEXAMETHASONE
     Route: 065
     Dates: start: 20180721, end: 20180721
  30. DEXAMETHASONE. [Concomitant]
     Active Substance: DEXAMETHASONE
     Route: 065
     Dates: start: 20180818, end: 20180818
  31. DEXAMETHASONE. [Concomitant]
     Active Substance: DEXAMETHASONE
     Route: 065
     Dates: start: 20181018, end: 20181018
  32. DARZALEX [Suspect]
     Active Substance: DARATUMUMAB
     Indication: PLASMA CELL MYELOMA
     Route: 041
     Dates: start: 20180116, end: 20180116
  33. DARZALEX [Suspect]
     Active Substance: DARATUMUMAB
     Route: 041
     Dates: start: 20180309, end: 20180309
  34. DARZALEX [Suspect]
     Active Substance: DARATUMUMAB
     Route: 041
     Dates: start: 20181015, end: 20181015
  35. VELCADE [Suspect]
     Active Substance: BORTEZOMIB
     Indication: PLASMA CELL MYELOMA
     Dosage: BORTEZOMIB:3MG
     Route: 065
     Dates: start: 20180117, end: 20180117
  36. VELCADE [Suspect]
     Active Substance: BORTEZOMIB
     Dosage: BORTEZOMIB:3MG
     Route: 065
     Dates: start: 20180309, end: 20180309
  37. VELCADE [Suspect]
     Active Substance: BORTEZOMIB
     Dosage: BORTEZOMIB:3MG
     Route: 065
     Dates: start: 20180319, end: 20180319
  38. VELCADE [Suspect]
     Active Substance: BORTEZOMIB
     Dosage: BORTEZOMIB:3MG
     Route: 065
     Dates: start: 20180521, end: 20180521
  39. VELCADE [Suspect]
     Active Substance: BORTEZOMIB
     Dosage: BORTEZOMIB:3MG
     Route: 065
     Dates: start: 20180827, end: 20180827
  40. DEXAMETHASONE. [Concomitant]
     Active Substance: DEXAMETHASONE
     Route: 065
     Dates: start: 20180119, end: 20180120
  41. DEXAMETHASONE. [Concomitant]
     Active Substance: DEXAMETHASONE
     Route: 065
     Dates: start: 20180625, end: 20180626
  42. DEXAMETHASONE. [Concomitant]
     Active Substance: DEXAMETHASONE
     Route: 065
     Dates: start: 20180820, end: 20180821
  43. DEXAMETHASONE. [Concomitant]
     Active Substance: DEXAMETHASONE
     Route: 065
     Dates: start: 20181025, end: 20181026
  44. DARZALEX [Suspect]
     Active Substance: DARATUMUMAB
     Route: 041
     Dates: start: 20180123, end: 20180123
  45. DARZALEX [Suspect]
     Active Substance: DARATUMUMAB
     Route: 041
     Dates: start: 20180615, end: 20180615
  46. VELCADE [Suspect]
     Active Substance: BORTEZOMIB
     Dosage: BORTEZOMIB:3MG
     Route: 065
     Dates: start: 20180625, end: 20180625
  47. DEXAMETHASONE. [Concomitant]
     Active Substance: DEXAMETHASONE
     Indication: PLASMA CELL MYELOMA
     Route: 065
     Dates: start: 20180116, end: 20180117
  48. DEXAMETHASONE. [Concomitant]
     Active Substance: DEXAMETHASONE
     Route: 065
     Dates: start: 20180824, end: 20180825
  49. DEXAMETHASONE. [Concomitant]
     Active Substance: DEXAMETHASONE
     Route: 065
     Dates: start: 20180921, end: 20180922
  50. DARZALEX [Suspect]
     Active Substance: DARATUMUMAB
     Route: 041
     Dates: start: 20180316, end: 20180316
  51. DARZALEX [Suspect]
     Active Substance: DARATUMUMAB
     Route: 041
     Dates: start: 20180518, end: 20180518
  52. VELCADE [Suspect]
     Active Substance: BORTEZOMIB
     Dosage: BORTEZOMIB:3MG
     Route: 065
     Dates: start: 20180518, end: 20180518
  53. VELCADE [Suspect]
     Active Substance: BORTEZOMIB
     Dosage: BORTEZOMIB:3MG
     Route: 065
     Dates: start: 20180615, end: 20180615
  54. VELCADE [Suspect]
     Active Substance: BORTEZOMIB
     Dosage: BORTEZOMIB:3MG
     Route: 065
     Dates: start: 20180618, end: 20180618
  55. DEXAMETHASONE. [Concomitant]
     Active Substance: DEXAMETHASONE
     Route: 065
     Dates: start: 20180130, end: 20180130
  56. DEXAMETHASONE. [Concomitant]
     Active Substance: DEXAMETHASONE
     Route: 065
     Dates: start: 20180323, end: 20180323
  57. DEXAMETHASONE. [Concomitant]
     Active Substance: DEXAMETHASONE
     Route: 065
     Dates: start: 20180514, end: 20180515
  58. DEXAMETHASONE. [Concomitant]
     Active Substance: DEXAMETHASONE
     Route: 065
     Dates: start: 20180827, end: 20180828
  59. DEXAMETHASONE. [Concomitant]
     Active Substance: DEXAMETHASONE
     Route: 065
     Dates: start: 20180925, end: 20180926
  60. DEXAMETHASONE. [Concomitant]
     Active Substance: DEXAMETHASONE
     Route: 065
     Dates: start: 20181016, end: 20181016
  61. DARZALEX [Suspect]
     Active Substance: DARATUMUMAB
     Route: 041
     Dates: start: 20190111, end: 20190111
  62. VELCADE [Suspect]
     Active Substance: BORTEZOMIB
     Dosage: BORTEZOMIB:3MG
     Route: 065
     Dates: start: 20180316, end: 20180316
  63. VELCADE [Suspect]
     Active Substance: BORTEZOMIB
     Dosage: BORTEZOMIB:3MG
     Route: 065
     Dates: start: 20180723, end: 20180723
  64. VELCADE [Suspect]
     Active Substance: BORTEZOMIB
     Dosage: BORTEZOMIB:3MG
     Route: 065
     Dates: start: 20180820, end: 20180820
  65. VELCADE [Suspect]
     Active Substance: BORTEZOMIB
     Dosage: BORTEZOMIB:3MG
     Route: 065
     Dates: start: 20180921, end: 20180921
  66. VELCADE [Suspect]
     Active Substance: BORTEZOMIB
     Dosage: BORTEZOMIB:3MG
     Route: 065
     Dates: start: 20180925, end: 20180925
  67. VELCADE [Suspect]
     Active Substance: BORTEZOMIB
     Dosage: BORTEZOMIB:3MG
     Route: 065
     Dates: start: 20181022, end: 20181022
  68. DEXAMETHASONE. [Concomitant]
     Active Substance: DEXAMETHASONE
     Route: 065
     Dates: start: 20180126, end: 20180127
  69. DEXAMETHASONE. [Concomitant]
     Active Substance: DEXAMETHASONE
     Route: 065
     Dates: start: 20180312, end: 20180313
  70. DEXAMETHASONE. [Concomitant]
     Active Substance: DEXAMETHASONE
     Route: 065
     Dates: start: 20180723, end: 20180723
  71. DEXAMETHASONE. [Concomitant]
     Active Substance: DEXAMETHASONE
     Route: 065
     Dates: start: 20190919, end: 20190919
  72. DEXAMETHASONE. [Concomitant]
     Active Substance: DEXAMETHASONE
     Route: 065
     Dates: start: 20181022, end: 20181023
  73. DARZALEX [Suspect]
     Active Substance: DARATUMUMAB
     Route: 041
     Dates: start: 20180323, end: 20180323
  74. DARZALEX [Suspect]
     Active Substance: DARATUMUMAB
     Route: 041
     Dates: start: 20180918, end: 20180918
  75. VELCADE [Suspect]
     Active Substance: BORTEZOMIB
     Dosage: BORTEZOMIB:3MG
     Route: 065
     Dates: start: 20180126, end: 20180126
  76. VELCADE [Suspect]
     Active Substance: BORTEZOMIB
     Dosage: BORTEZOMIB:3MG
     Route: 065
     Dates: start: 20180720, end: 20180720
  77. VELCADE [Suspect]
     Active Substance: BORTEZOMIB
     Dosage: BORTEZOMIB:3MG
     Route: 065
     Dates: start: 20180918, end: 20180918
  78. VELCADE [Suspect]
     Active Substance: BORTEZOMIB
     Dosage: BORTEZOMIB:3MG
     Route: 065
     Dates: start: 20181025, end: 20181025
  79. DEXAMETHASONE. [Concomitant]
     Active Substance: DEXAMETHASONE
     Route: 065
     Dates: start: 20180519, end: 20180519
  80. DEXAMETHASONE. [Concomitant]
     Active Substance: DEXAMETHASONE
     Route: 065
     Dates: start: 20180727, end: 20180728

REACTIONS (4)
  - Platelet count decreased [Recovered/Resolved]
  - Infusion related reaction [Recovered/Resolved]
  - White blood cell count decreased [Recovered/Resolved]
  - Pyrexia [Recovered/Resolved]

NARRATIVE: CASE EVENT DATE: 20180116
